FAERS Safety Report 5099690-2 (Version None)
Quarter: 2006Q3

REPORT INFORMATION
  Report Type: 
  Country: None (occurrence: None)
  Receive Date: 20060908
  Receipt Date: 20060829
  Transmission Date: 20061208
  Serious: Yes (Other)
  Sender: FDA-Public Use
  Company Number: US-AVENTIS-200617296US

PATIENT
  Age: 56 Year
  Sex: Female

DRUGS (7)
  1. KETEK [Suspect]
     Indication: SINUSITIS
     Route: 048
     Dates: start: 20060119
  2. KETEK [Suspect]
     Route: 048
     Dates: start: 20060131
  3. CIPRO [Concomitant]
     Indication: SINUSITIS
     Route: 048
     Dates: start: 20051224
  4. FLONASE [Concomitant]
     Indication: HYPERSENSITIVITY
     Dosage: DOSE: PRN
     Route: 045
     Dates: start: 20051204
  5. PHENERGAN HCL [Concomitant]
     Indication: NAUSEA
     Dosage: DOSE: PRN
     Dates: start: 20060117
  6. ACIDOPHILUS [Concomitant]
     Indication: NAUSEA
     Dosage: DOSE: AS NEEDED
     Dates: start: 20060117
  7. AUGMENTIN [Concomitant]
     Indication: INFECTION
     Route: 048
     Dates: start: 20060214

REACTIONS (3)
  - ALANINE AMINOTRANSFERASE INCREASED [None]
  - ASPARTATE AMINOTRANSFERASE INCREASED [None]
  - HEPATITIS TOXIC [None]
